FAERS Safety Report 8402483-9 (Version None)
Quarter: 2012Q1

REPORT INFORMATION
  Report Type: 
  Country: None (occurrence: None)
  Receive Date: 20120323
  Receipt Date: 20110405
  Transmission Date: 20120608
  Serious: Yes (Other)
  Sender: FDA-Public Use
  Company Number: 163-21880-11010714

PATIENT
  Age: 76 Year
  Sex: Female
  Weight: 68.9 kg

DRUGS (6)
  1. LORTAB [Concomitant]
  2. REVLIMID [Suspect]
     Indication: MULTIPLE MYELOMA
     Dosage: 10 MG, DAILY X 28 DAYS, PO, 10 MG, DAILY X 28 DAYS, PO
     Route: 048
     Dates: start: 20101101, end: 20110131
  3. REVLIMID [Suspect]
     Indication: MULTIPLE MYELOMA
     Dosage: 10 MG, DAILY X 28 DAYS, PO, 10 MG, DAILY X 28 DAYS, PO
     Route: 048
     Dates: start: 20110224
  4. REVLIMID [Suspect]
  5. REVLIMID [Suspect]
  6. ZOMETA [Concomitant]

REACTIONS (9)
  - MYALGIA [None]
  - PSORIASIS [None]
  - INFECTION [None]
  - ANAEMIA [None]
  - FATIGUE [None]
  - MUSCLE SPASMS [None]
  - ASTHENIA [None]
  - URINE OUTPUT DECREASED [None]
  - LABYRINTHITIS [None]
